FAERS Safety Report 15571882 (Version 3)
Quarter: 2018Q4

REPORT INFORMATION
  Report Type: Report from Study
  Country: US (occurrence: US)
  Receive Date: 20181031
  Receipt Date: 20181031
  Transmission Date: 20190205
  Serious: Yes (Other)
  Sender: FDA-Public Use
  Company Number: US-AMGEN-USASL2018127362

PATIENT
  Age: 64 Year
  Sex: Male
  Weight: 81.45 kg

DRUGS (9)
  1. REPATHA [Suspect]
     Active Substance: EVOLOCUMAB
     Indication: HYPERLIPIDAEMIA
  2. AMLODIPINE [Concomitant]
     Active Substance: AMLODIPINE BESYLATE
     Indication: HYPERTENSION
     Dosage: 5 MG, QD (2 TABLETS DAILY)
  3. ASPIRIN 81 [Concomitant]
     Active Substance: ASPIRIN
     Dosage: 1 DF, QD
  4. HYDROCHLOROTHIAZIDE. [Concomitant]
     Active Substance: HYDROCHLOROTHIAZIDE
     Dosage: 12.5 MG, QD
     Dates: end: 20180213
  5. PREVACID [Concomitant]
     Active Substance: LANSOPRAZOLE
     Dosage: 30 MG, QD (0.5/HALF CAPSULE DAILY)
  6. CLONIDINE HCL [Concomitant]
     Active Substance: CLONIDINE HYDROCHLORIDE
     Dosage: 0.1 MG, UNK
  7. REPATHA [Suspect]
     Active Substance: EVOLOCUMAB
     Indication: BLOOD CHOLESTEROL INCREASED
     Dosage: 140 MG/ML, Q2WK
     Route: 058
     Dates: start: 20160330
  8. LISINOPRIL. [Concomitant]
     Active Substance: LISINOPRIL
     Dosage: 40 MG, QD
  9. DESOXIMETASONE. [Concomitant]
     Active Substance: DESOXIMETASONE
     Indication: ECZEMA
     Dosage: 0.25 %, AS NECESSARY (1 APPLICATION AS NEEDED)

REACTIONS (7)
  - Arthritis [Unknown]
  - Intervertebral disc degeneration [Unknown]
  - Chest pain [Not Recovered/Not Resolved]
  - Blood pressure increased [Recovered/Resolved]
  - Myalgia [Unknown]
  - Gout [Unknown]
  - Muscle spasms [Unknown]

NARRATIVE: CASE EVENT DATE: 201711
